FAERS Safety Report 12375211 (Version 4)
Quarter: 2016Q3

REPORT INFORMATION
  Report Type: Report from Study
  Country: GB (occurrence: GB)
  Receive Date: 20160517
  Receipt Date: 20160920
  Transmission Date: 20161109
  Serious: Yes (Death, Life-Threatening, Hospitalization, Other)
  Sender: FDA-Public Use
  Company Number: GB-BEH-2016062451

PATIENT
  Age: 33 Year
  Sex: Male

DRUGS (2)
  1. BLINDED PLACEBO [Suspect]
     Active Substance: INVESTIGATIONAL PRODUCT
     Indication: TRAUMATIC HAEMORRHAGE
     Dosage: UNK
     Route: 065
     Dates: start: 20160403
  2. RIASTAP [Suspect]
     Active Substance: FIBRINOGEN HUMAN
     Indication: TRAUMATIC HAEMORRHAGE
     Dosage: UNK
     Route: 065
     Dates: start: 20160403

REACTIONS (19)
  - Ventricular tachycardia [Recovered/Resolved]
  - Multiple injuries [Fatal]
  - Ankle fracture [Unknown]
  - Compartment syndrome [Unknown]
  - Compartment syndrome [Not Recovered/Not Resolved]
  - Compartment syndrome [Not Recovered/Not Resolved]
  - Shock [Unknown]
  - Acidosis [Unknown]
  - Hyperkalaemia [Unknown]
  - Oedema [Unknown]
  - Surgery [Fatal]
  - Acute respiratory distress syndrome [Not Recovered/Not Resolved]
  - Hypoperfusion [Unknown]
  - Blood lactic acid increased [Unknown]
  - Multiple organ dysfunction syndrome [Fatal]
  - Blood creatine phosphokinase decreased [Unknown]
  - Acute kidney injury [Not Recovered/Not Resolved]
  - Rhabdomyolysis [Not Recovered/Not Resolved]
  - Pelvic fracture [Unknown]

NARRATIVE: CASE EVENT DATE: 20160404
